FAERS Safety Report 7946915-9 (Version None)
Quarter: 2011Q4

REPORT INFORMATION
  Report Type: 
  Country: None (occurrence: None)
  Receive Date: 20111129
  Receipt Date: 20111125
  Transmission Date: 20120403
  Serious: Yes (Death, Other)
  Sender: FDA-Public Use
  Company Number: US-PFIZER INC-2009199158

PATIENT
  Sex: Female
  Weight: 56.69 kg

DRUGS (5)
  1. PROMETHAZINE HCL [Suspect]
     Indication: PRODUCT USED FOR UNKNOWN INDICATION
     Dosage: UNK
     Route: 065
  2. MORPHINE SULFATE [Suspect]
     Indication: PRODUCT USED FOR UNKNOWN INDICATION
     Dosage: UNK
     Route: 065
  3. TEMAZEPAM [Suspect]
     Dosage: UNK
     Route: 065
  4. CANNABIS [Suspect]
     Indication: SUBSTANCE ABUSE
     Dosage: UNK
     Route: 065
  5. DIAZEPAM [Suspect]
     Dosage: UNK
     Route: 065

REACTIONS (3)
  - SUBSTANCE ABUSE [None]
  - MULTIPLE DRUG OVERDOSE ACCIDENTAL [None]
  - HEADACHE [None]
